FAERS Safety Report 4877240-0 (Version None)
Quarter: 2006Q1

REPORT INFORMATION
  Report Type: 
  Country: None (occurrence: None)
  Receive Date: 20060111
  Receipt Date: 20060104
  Transmission Date: 20060701
  Serious: Yes (Hospitalization, Other)
  Sender: FDA-Public Use
  Company Number: JP-JNJFOC-20051201917

PATIENT
  Sex: Male
  Weight: 62.5 kg

DRUGS (26)
  1. INFLIXIMAB [Suspect]
     Route: 042
  2. INFLIXIMAB [Suspect]
     Route: 042
  3. INFLIXIMAB [Suspect]
     Indication: RETINITIS
     Route: 042
  4. COLCHICINE [Concomitant]
     Dosage: START DATE: BEFORE STUDY
     Route: 048
  5. LOCOID [Concomitant]
     Dosage: ADEQUATE DOSE
     Route: 061
  6. ISODINE GARGLE [Concomitant]
     Indication: VIRAL INFECTION
     Dosage: ADEQUATE DOSE
  7. GASTER D [Concomitant]
     Route: 048
  8. GASTER D [Concomitant]
     Indication: PROPHYLAXIS
     Route: 048
  9. NEORAL [Concomitant]
     Route: 048
  10. APLACE [Concomitant]
     Indication: PROPHYLAXIS
     Route: 048
  11. PREDONINE [Concomitant]
     Route: 048
  12. MYDRIN P [Concomitant]
     Dosage: START DATE: BEFORE STUDY, 3 TIMES DAILY, RIGHT EYE
     Route: 047
  13. MYDRIN P [Concomitant]
     Indication: UVEITIS
     Dosage: START DATE: BEFORE STUDY, 3 TIMES DAILY, LEFT EYE
     Route: 047
  14. TIMOPTIC [Concomitant]
     Dosage: START DATE: BEFORE STUDY, TWICE DAILY, RIGHT EYE
     Route: 047
  15. TIMOPTIC [Concomitant]
     Indication: GLAUCOMA
     Dosage: START DATE: BEFORE STUDY, TWICE DAILY, LEFT EYE
     Route: 047
  16. TRUSOPT [Concomitant]
     Dosage: START DATE: BEFORE STUDY, 3 TIMES DAILY, RIGHT EYE
     Route: 047
  17. TRUSOPT [Concomitant]
     Indication: GLAUCOMA
     Dosage: START DATE: BEFORE STUDY, 3 TIMES DAILY, LEFT EYE
     Route: 047
  18. CRAVIT [Concomitant]
     Dosage: START DATE: BEFORE STUDY, TWICE DAILY, RIGHT EYE
     Route: 047
  19. CRAVIT [Concomitant]
     Indication: INFECTION PROPHYLAXIS
     Dosage: START DATE: BEFORE STUDY, TWICE DAILY, LEFT EYE
     Route: 047
  20. BETAMETHASONE SODIUM PHOSPHATE [Concomitant]
     Dosage: NINE TIMES DAILY, LEFT EYE
     Route: 047
  21. BETAMETHASONE SODIUM PHOSPHATE [Concomitant]
     Dosage: FOUR TIMES DAILY, LEFT EYE
     Route: 047
  22. FLUMETHOLON [Concomitant]
     Indication: UVEITIS
     Dosage: 4 TIMES DAILY, RIGHT EYE
     Route: 047
  23. DIAMOX [Concomitant]
     Route: 048
  24. DIAMOX [Concomitant]
     Route: 048
  25. ASPARA K [Concomitant]
     Route: 048
  26. XALATAN [Concomitant]
     Dosage: ONCE DAILY, RIGHT EYE
     Route: 047

REACTIONS (2)
  - CATARACT [None]
  - GLAUCOMA [None]
